FAERS Safety Report 11675656 (Version 2)
Quarter: 2015Q4

REPORT INFORMATION
  Report Type: Report from Study
  Country: CA (occurrence: CA)
  Receive Date: 20151028
  Receipt Date: 20151110
  Transmission Date: 20160304
  Serious: Yes (Life-Threatening, Hospitalization, Other)
  Sender: FDA-Public Use
  Company Number: CA-ABBVIE-15K-028-1488215-00

PATIENT
  Sex: Male

DRUGS (1)
  1. HUMIRA [Suspect]
     Active Substance: ADALIMUMAB
     Indication: MATERNAL EXPOSURE TIMING UNSPECIFIED
     Route: 064

REACTIONS (4)
  - Hypotonia [Unknown]
  - Cyanosis [Recovered/Resolved]
  - Pulmonary vascular disorder [Not Recovered/Not Resolved]
  - Shoulder dystocia [Recovered/Resolved]

NARRATIVE: CASE EVENT DATE: 201509
